FAERS Safety Report 23982479 (Version 1)
Quarter: 2024Q2

REPORT INFORMATION
  Report Type: Spontaneous
  Country: US (occurrence: US)
  Receive Date: 20240617
  Receipt Date: 20240617
  Transmission Date: 20240716
  Serious: Yes (Other)
  Sender: FDA-Public Use
  Company Number: US-JNJFOC-20240624790

PATIENT
  Sex: Female

DRUGS (1)
  1. TALQUETAMAB [Suspect]
     Active Substance: TALQUETAMAB
     Indication: Product used for unknown indication
     Route: 065

REACTIONS (7)
  - Neutropenia [Unknown]
  - Dry skin [Recovering/Resolving]
  - Nail disorder [Unknown]
  - Nail ridging [Unknown]
  - Nail discolouration [Unknown]
  - Nail discomfort [Unknown]
  - Contusion [Unknown]
